FAERS Safety Report 25139236 (Version 3)
Quarter: 2025Q3

REPORT INFORMATION
  Report Type: Spontaneous
  Country: US (occurrence: US)
  Receive Date: 20250331
  Receipt Date: 20250727
  Transmission Date: 20251021
  Serious: No
  Sender: BAUSCH AND LOMB
  Company Number: US-BAUSCHBL-2025BNL005052

PATIENT
  Age: 77 Year
  Sex: Male

DRUGS (1)
  1. MIEBO [Suspect]
     Active Substance: PERFLUOROHEXYLOCTANE
     Indication: Dry eye
     Route: 065
     Dates: start: 202501, end: 202503

REACTIONS (5)
  - Eye disorder [Recovering/Resolving]
  - Visual impairment [Recovering/Resolving]
  - Vision blurred [Recovering/Resolving]
  - Product residue present [Recovering/Resolving]
  - Inappropriate schedule of product administration [Unknown]

NARRATIVE: CASE EVENT DATE: 20250101
